FAERS Safety Report 10757437 (Version 1)
Quarter: 2015Q1

REPORT INFORMATION
  Report Type: Spontaneous
  Country: US (occurrence: US)
  Receive Date: 20150203
  Receipt Date: 20150203
  Transmission Date: 20150721
  Serious: Yes (Death, Other)
  Sender: FDA-Public Use
  Company Number: US-JNJFOC-20150114300

PATIENT

DRUGS (8)
  1. CYCLOPHOSPHAMIDE. [Suspect]
     Active Substance: CYCLOPHOSPHAMIDE
     Indication: DIFFUSE LARGE B-CELL LYMPHOMA
     Route: 065
  2. LENALIDOMIDE [Suspect]
     Active Substance: LENALIDOMIDE
     Indication: DIFFUSE LARGE B-CELL LYMPHOMA
     Dosage: DAYS 1 THROUGH 10 OF EACH CYCLE
     Route: 048
  3. RITUXIMAB [Suspect]
     Active Substance: RITUXIMAB
     Indication: DIFFUSE LARGE B-CELL LYMPHOMA
     Route: 065
  4. PREDNISONE. [Suspect]
     Active Substance: PREDNISONE
     Indication: DIFFUSE LARGE B-CELL LYMPHOMA
     Dosage: DAYS 1 THROUGH 5
     Route: 065
  5. ASPIRIN. [Concomitant]
     Active Substance: ASPIRIN
     Indication: PROPHYLAXIS
     Route: 065
  6. VINCRISTINE [Suspect]
     Active Substance: VINCRISTINE
     Indication: DIFFUSE LARGE B-CELL LYMPHOMA
     Route: 065
  7. PEGFILGRASTIM [Concomitant]
     Active Substance: PEGFILGRASTIM
     Dosage: DAY 2
     Route: 058
  8. DOXORUBICIN [Suspect]
     Active Substance: DOXORUBICIN
     Indication: DIFFUSE LARGE B-CELL LYMPHOMA
     Route: 042

REACTIONS (30)
  - Weight decreased [Unknown]
  - Neutrophil count abnormal [Unknown]
  - Nausea [Unknown]
  - Blood sodium decreased [Unknown]
  - Laryngeal pain [Unknown]
  - Pneumonitis [Unknown]
  - Haemoglobin decreased [Unknown]
  - Intestinal perforation [Unknown]
  - Platelet count decreased [Unknown]
  - Dehydration [Unknown]
  - Febrile neutropenia [Unknown]
  - Vomiting [Unknown]
  - Blood albumin decreased [Unknown]
  - Pneumonia [Unknown]
  - Sepsis [Unknown]
  - Thrombosis [Unknown]
  - Upper respiratory tract infection [Unknown]
  - Vascular access complication [Unknown]
  - Fatigue [Unknown]
  - White blood cell count decreased [Unknown]
  - Intra-abdominal haemorrhage [Unknown]
  - Skin infection [Unknown]
  - Left ventricular dysfunction [Unknown]
  - Diffuse large B-cell lymphoma [Fatal]
  - Dyspnoea [Unknown]
  - Neutrophil count decreased [Unknown]
  - Blood potassium decreased [Unknown]
  - Urinary tract infection [Unknown]
  - Stomatitis [Unknown]
  - Lymphocyte count decreased [Unknown]
